FAERS Safety Report 9534228 (Version 1)
Quarter: 2013Q3

REPORT INFORMATION
  Report Type: Spontaneous
  Country: BE (occurrence: BE)
  Receive Date: 20130918
  Receipt Date: 20130918
  Transmission Date: 20140515
  Serious: Yes (Other)
  Sender: FDA-Public Use
  Company Number: BE-ROCHE-1273875

PATIENT
  Age: 52 Year
  Sex: Female

DRUGS (17)
  1. HERCEPTIN [Suspect]
     Indication: BREAST CANCER METASTATIC
     Route: 065
     Dates: start: 20070326
  2. HERCEPTIN [Suspect]
     Route: 065
     Dates: start: 20070906, end: 20080914
  3. HERCEPTIN [Suspect]
     Route: 065
     Dates: start: 20110818, end: 20130124
  4. HERCEPTIN [Suspect]
     Route: 065
     Dates: start: 20120209, end: 20130124
  5. HERCEPTIN [Suspect]
     Route: 065
     Dates: start: 20130222
  6. XELODA [Suspect]
     Indication: BREAST CANCER METASTATIC
     Route: 065
     Dates: start: 20080718
  7. XELODA [Suspect]
     Route: 065
     Dates: start: 20130222, end: 20130905
  8. ZOMETA [Suspect]
     Indication: HIP FRACTURE
     Route: 065
     Dates: start: 20061114
  9. LAPATINIB [Suspect]
     Indication: BREAST CANCER METASTATIC
     Route: 065
     Dates: start: 20080918, end: 20091230
  10. LAPATINIB [Suspect]
     Route: 065
     Dates: start: 20100215
  11. LAPATINIB [Suspect]
     Route: 065
     Dates: start: 20130222, end: 20130905
  12. TAXOL [Suspect]
     Indication: BREAST CANCER METASTATIC
     Route: 065
     Dates: start: 20070326
  13. CARBOPLATIN [Suspect]
     Indication: BREAST CANCER METASTATIC
     Route: 065
     Dates: start: 20070326
  14. NAVELBINE [Suspect]
     Indication: BREAST CANCER METASTATIC
     Route: 065
     Dates: start: 20110818, end: 20120209
  15. FLUOROURACIL [Concomitant]
     Indication: BREAST CANCER METASTATIC
     Route: 065
     Dates: start: 20070223
  16. EPIRUBICIN [Concomitant]
     Indication: BREAST CANCER METASTATIC
     Route: 065
     Dates: start: 20070223
  17. CYCLOPHOSPHAMIDE [Concomitant]
     Indication: BREAST CANCER METASTATIC
     Route: 065
     Dates: start: 20070223

REACTIONS (11)
  - Pleural effusion [Unknown]
  - Disease progression [Unknown]
  - Iron deficiency anaemia [Unknown]
  - Partial seizures [Unknown]
  - Palmar-plantar erythrodysaesthesia syndrome [Unknown]
  - Nail disorder [Unknown]
  - Skin fissures [Unknown]
  - Diarrhoea [Unknown]
  - Metastases to liver [Recovered/Resolved]
  - Diabetes mellitus [Unknown]
  - Metastases to central nervous system [Unknown]
